FAERS Safety Report 6155142-X (Version None)
Quarter: 2009Q2

REPORT INFORMATION
  Report Type: 
  Country: None (occurrence: None)
  Receive Date: 20090415
  Receipt Date: 20071003
  Transmission Date: 20091009
  Serious: Yes (Life-Threatening, Hospitalization)
  Sender: FDA-Public Use
  Company Number: US-ASTRAZENECA-2006UW21042

PATIENT
  Sex: Female
  Weight: 184.9 kg

DRUGS (42)
  1. SEROQUEL [Suspect]
     Indication: ANXIETY
     Dosage: 25-300 MG
     Route: 048
     Dates: start: 19980101
  2. SEROQUEL [Suspect]
     Indication: DEPRESSION
     Dosage: 25-300 MG
     Route: 048
     Dates: start: 19980101
  3. SEROQUEL [Suspect]
     Indication: DEMENTIA
     Dosage: 25-300 MG
     Route: 048
     Dates: start: 19980101
  4. EFFEXOR XR [Concomitant]
  5. REGLAN [Concomitant]
  6. GLIPIZIDE [Concomitant]
  7. CALAN [Concomitant]
  8. AMBIEN [Concomitant]
  9. LASIX [Concomitant]
  10. GLUCOPHAGE [Concomitant]
  11. ALDACTONE [Concomitant]
  12. PRILOSEC [Concomitant]
  13. REMERON [Concomitant]
  14. ATIVAN [Concomitant]
  15. COMBIVENT [Concomitant]
  16. FLOVENT [Concomitant]
  17. LANTUS [Concomitant]
  18. GLUCOVANCE [Concomitant]
  19. MECLIZINE [Concomitant]
  20. ACTOS [Concomitant]
  21. ZOCOR [Concomitant]
  22. VIOXX [Concomitant]
  23. LIPITOR [Concomitant]
  24. FLUCONAZOLE [Concomitant]
  25. COZAAR [Concomitant]
  26. MOMETASONE FUROATE [Concomitant]
  27. PRAVASTATIN SODIUM [Concomitant]
  28. COUMADIN [Concomitant]
  29. TYLENOL [Concomitant]
  30. GABAPENTIN [Concomitant]
  31. LISINOPRIL [Concomitant]
  32. CLEMASTINE FUMARATE [Concomitant]
  33. RESTORIL [Concomitant]
  34. LEVOTHYROXINE SODIUM [Concomitant]
  35. METOPROLOL TARTRATE [Concomitant]
  36. VALIUM [Concomitant]
  37. HUMULIN R [Concomitant]
  38. METOLAZONE [Concomitant]
  39. PROMETHAZINE [Concomitant]
  40. NAPROXEN SODIUM [Concomitant]
  41. BEXTRA [Concomitant]
  42. TICLID [Concomitant]

REACTIONS (28)
  - ACIDOSIS [None]
  - BACK PAIN [None]
  - CARDIAC FAILURE CONGESTIVE [None]
  - CONSTIPATION [None]
  - DIABETES MELLITUS [None]
  - DRY MOUTH [None]
  - DYSPHAGIA [None]
  - DYSPNOEA [None]
  - FATIGUE [None]
  - FURUNCLE [None]
  - HAEMATOMA [None]
  - HALLUCINATION [None]
  - HYPOXIA [None]
  - INSOMNIA [None]
  - LUNG DISORDER [None]
  - MOOD ALTERED [None]
  - MUSCLE ATROPHY [None]
  - MUSCULAR WEAKNESS [None]
  - MUSCULOSKELETAL PAIN [None]
  - OBSESSIVE-COMPULSIVE DISORDER [None]
  - OEDEMA PERIPHERAL [None]
  - OROPHARYNGEAL PAIN [None]
  - PNEUMONIA ASPIRATION [None]
  - PULMONARY HYPERTENSION [None]
  - PYREXIA [None]
  - RESPIRATORY DISORDER [None]
  - RESPIRATORY DISTRESS [None]
  - RESPIRATORY FAILURE [None]
